FAERS Safety Report 20288068 (Version 1)
Quarter: 2022Q1

REPORT INFORMATION
  Report Type: Spontaneous
  Country: US (occurrence: US)
  Receive Date: 20220104
  Receipt Date: 20220104
  Transmission Date: 20220423
  Serious: No
  Sender: FDA-Public Use
  Company Number: US-TAKEDA-2021TUS083394

PATIENT
  Sex: Female
  Weight: 69.388 kg

DRUGS (1)
  1. LIVTENCITY [Suspect]
     Active Substance: MARIBAVIR
     Indication: Cytomegalovirus infection
     Dosage: 200 MILLIGRAM, BID
     Route: 048

REACTIONS (4)
  - Abdominal pain upper [Unknown]
  - Therapy interrupted [Unknown]
  - Illness [Unknown]
  - Nausea [Unknown]
